FAERS Safety Report 23653820 (Version 2)
Quarter: 2024Q3

REPORT INFORMATION
  Report Type: Spontaneous
  Country: US (occurrence: US)
  Receive Date: 20240320
  Receipt Date: 20240924
  Transmission Date: 20241016
  Serious: Yes (Death, Disabling, Other)
  Sender: SANOFI AVENTIS
  Company Number: US-SA-SAC20240320000068

PATIENT
  Age: 49 Year
  Sex: Female

DRUGS (3)
  1. KEVZARA [Suspect]
     Active Substance: SARILUMAB
     Indication: Rheumatoid arthritis
     Dosage: 200 MG, QOW
     Route: 058
     Dates: start: 202402, end: 2024
  2. ENBREL [Concomitant]
     Active Substance: ETANERCEPT
     Dosage: UNK
  3. XELJANZ XR [Concomitant]
     Active Substance: TOFACITINIB CITRATE
     Dosage: UNK

REACTIONS (5)
  - Death [Fatal]
  - Loss of personal independence in daily activities [Unknown]
  - Pain [Unknown]
  - Malaise [Unknown]
  - Gait disturbance [Unknown]

NARRATIVE: CASE EVENT DATE: 20240101
